FAERS Safety Report 7486936-6 (Version None)
Quarter: 2011Q2

REPORT INFORMATION
  Report Type: 
  Country: None (occurrence: None)
  Receive Date: 20110517
  Receipt Date: 20100720
  Transmission Date: 20111010
  Serious: No
  Sender: FDA-Public Use
  Company Number: US-AMGEN-TCS418201

PATIENT
  Age: 29 Year
  Sex: Female
  Weight: 84 kg

DRUGS (5)
  1. PREDNISONE [Concomitant]
     Dosage: UNK UNK, UNK
     Dates: start: 20100706
  2. ENBREL [Suspect]
     Indication: RHEUMATOID ARTHRITIS
     Dosage: 50 MG, QWK
     Route: 058
     Dates: start: 20100606, end: 20100613
  3. METHOTREXATE [Concomitant]
  4. ACETAMINOPHEN AND HYDROCODONE BITARTRATE [Concomitant]
  5. INDOMETHACIN [Concomitant]

REACTIONS (9)
  - INJECTION SITE WARMTH [None]
  - PRURITUS [None]
  - CELLULITIS [None]
  - ERYTHEMA [None]
  - HYPERSENSITIVITY [None]
  - INJECTION SITE RASH [None]
  - INJECTION SITE SWELLING [None]
  - INJECTION SITE ERYTHEMA [None]
  - SWELLING [None]
